FAERS Safety Report 12284758 (Version 1)
Quarter: 2016Q2

REPORT INFORMATION
  Report Type: Spontaneous
  Country: US (occurrence: US)
  Receive Date: 20160420
  Receipt Date: 20160420
  Transmission Date: 20160815
  Serious: No
  Sender: FDA-Public Use
  Company Number: US-TEVA-588388USA

PATIENT
  Age: 70 Year
  Sex: Female
  Weight: 72.64 kg

DRUGS (1)
  1. ZOLPIDEM [Suspect]
     Active Substance: ZOLPIDEM\ZOLPIDEM TARTRATE
     Indication: INSOMNIA
     Dates: end: 20150814

REACTIONS (6)
  - Nightmare [Unknown]
  - Blood pressure increased [Unknown]
  - Abdominal pain upper [Unknown]
  - Insomnia [Unknown]
  - Headache [Unknown]
  - Sleep paralysis [Unknown]

NARRATIVE: CASE EVENT DATE: 20150814
